FAERS Safety Report 6433550-7 (Version None)
Quarter: 2009Q4

REPORT INFORMATION
  Report Type: 
  Country: None (occurrence: None)
  Receive Date: 20091110
  Receipt Date: 20091028
  Transmission Date: 20100525
  Serious: Yes (Other)
  Sender: FDA-Public Use
  Company Number: BE-BAXTER-2009BH016668

PATIENT
  Age: 59 Year
  Sex: Female

DRUGS (1)
  1. TISSUCOL/TISSEEL DUO STIM4 [Suspect]
     Indication: CARDIAC OPERATION
     Route: 065
     Dates: start: 20090423, end: 20090423

REACTIONS (2)
  - DRUG ADMINISTERED AT INAPPROPRIATE SITE [None]
  - RESPIRATORY DISTRESS [None]
